FAERS Safety Report 13806858 (Version 4)
Quarter: 2018Q1

REPORT INFORMATION
  Report Type: Report from Study
  Country: US (occurrence: US)
  Receive Date: 20170728
  Receipt Date: 20180125
  Transmission Date: 20180508
  Serious: No
  Sender: FDA-Public Use
  Company Number: US-AMGEN-USASL2017103026

PATIENT
  Age: 76 Year
  Sex: Female

DRUGS (3)
  1. REPATHA [Suspect]
     Active Substance: EVOLOCUMAB
     Indication: LOW DENSITY LIPOPROTEIN INCREASED
     Dosage: 420 MG, QMO
     Route: 065
  2. REPATHA [Suspect]
     Active Substance: EVOLOCUMAB
     Indication: HYPERCHOLESTEROLAEMIA
     Dosage: UNK
     Route: 065
  3. REPATHA [Suspect]
     Active Substance: EVOLOCUMAB
     Indication: HYPERLIPIDAEMIA

REACTIONS (11)
  - Constipation [Recovering/Resolving]
  - Viral infection [Unknown]
  - Diarrhoea [Not Recovered/Not Resolved]
  - Mass [Unknown]
  - Abdominal discomfort [Unknown]
  - Dyspepsia [Recovering/Resolving]
  - Nonspecific reaction [Unknown]
  - Nausea [Unknown]
  - Reflexes abnormal [Not Recovered/Not Resolved]
  - Stasis dermatitis [Recovering/Resolving]
  - Rash [Unknown]

NARRATIVE: CASE EVENT DATE: 201706
